FAERS Safety Report 4383740-2 (Version None)
Quarter: 2004Q2

REPORT INFORMATION
  Report Type: 
  Country: None (occurrence: None)
  Receive Date: 20040608
  Receipt Date: 20030716
  Transmission Date: 20050107
  Serious: Yes (Other)
  Sender: FDA-Public Use
  Company Number: 200312447BCC

PATIENT
  Age: 78 Year
  Sex: Female
  Weight: 38.1022 kg

DRUGS (4)
  1. ALEVE [Suspect]
     Indication: BACK PAIN
     Dosage: 440 MG, QD, ORAL
     Route: 048
     Dates: start: 20030707, end: 20030714
  2. DILANTIN [Concomitant]
  3. DARVON [Concomitant]
  4. GALENIC / ALUMINIUM MAGNESIUM HYDROXIDE/ [Concomitant]

REACTIONS (5)
  - DIZZINESS [None]
  - INSOMNIA [None]
  - NERVOUSNESS [None]
  - RASH [None]
  - SWOLLEN TONGUE [None]
